FAERS Safety Report 4300820-8 (Version None)
Quarter: 2004Q1

REPORT INFORMATION
  Report Type: 
  Country: None (occurrence: None)
  Receive Date: 20040219
  Receipt Date: 20040204
  Transmission Date: 20041129
  Serious: Yes (Hospitalization)
  Sender: FDA-Public Use
  Company Number: 2004IM000285

PATIENT
  Age: 67 Year
  Sex: Male

DRUGS (4)
  1. ADVAFERON (A643_INTERFERON ALFACON-1) [Suspect]
     Indication: HEPATITIS C
     Dosage: 18 MU; SUBCUTANEOUS
     Route: 058
     Dates: start: 20020509, end: 20020706
  2. VALSARTAN [Concomitant]
  3. REBAMIPIDE [Concomitant]
  4. GANATON [Concomitant]

REACTIONS (1)
  - DIABETES MELLITUS [None]
